FAERS Safety Report 17294757 (Version 1)
Quarter: 2020Q1

REPORT INFORMATION
  Report Type: Spontaneous
  Country: US (occurrence: US)
  Receive Date: 20200121
  Receipt Date: 20200121
  Transmission Date: 20200409
  Serious: No
  Sender: FDA-Public Use
  Company Number: US-PFIZER INC-2020023402

PATIENT
  Age: 40 Year
  Sex: Female
  Weight: 59.41 kg

DRUGS (1)
  1. IBRANCE [Suspect]
     Active Substance: PALBOCICLIB
     Indication: BREAST CANCER METASTATIC
     Dosage: 125 MG, CYCLIC (D1-21Q (EVERY) 28 DAYS)
     Route: 048
     Dates: start: 201907

REACTIONS (1)
  - Nausea [Unknown]
